FAERS Safety Report 8480006-6 (Version None)
Quarter: 2012Q2

REPORT INFORMATION
  Report Type: 
  Country: None (occurrence: None)
  Receive Date: 20120629
  Receipt Date: 20120626
  Transmission Date: 20120825
  Serious: Yes (Death, Hospitalization, Other)
  Sender: FDA-Public Use
  Company Number: JP-B.I. PHARMACEUTICALS,INC./RIDGEFIELD-2012-BP-14400NB

PATIENT
  Age: 88 Year
  Sex: Female

DRUGS (2)
  1. PRADAXA [Suspect]
     Indication: ATRIAL FIBRILLATION
     Dosage: 110 MG
     Route: 048
     Dates: end: 20120626
  2. PRADAXA [Suspect]
     Dosage: 75MG/DAY ON MON, WED AND FRI IN A WEEK
     Route: 048

REACTIONS (4)
  - RENAL FAILURE [None]
  - SHOCK HAEMORRHAGIC [None]
  - SEPSIS [None]
  - CARDIAC FAILURE [None]
